FAERS Safety Report 23714860 (Version 4)
Quarter: 2025Q1

REPORT INFORMATION
  Report Type: Report from Study
  Country: US (occurrence: US)
  Receive Date: 20240406
  Receipt Date: 20250218
  Transmission Date: 20250408
  Serious: Yes (Other)
  Sender: ABBVIE
  Company Number: US-ABBVIE-5672516

PATIENT
  Age: 69 Year
  Sex: Female
  Weight: 71.214 kg

DRUGS (2)
  1. RINVOQ [Suspect]
     Active Substance: UPADACITINIB
     Indication: Crohn^s disease
     Route: 048
     Dates: start: 202312
  2. RINVOQ [Suspect]
     Active Substance: UPADACITINIB
     Indication: Crohn^s disease
     Route: 048
     Dates: start: 20231027

REACTIONS (3)
  - Intra-abdominal haemorrhage [Not Recovered/Not Resolved]
  - Influenza [Recovering/Resolving]
  - Abdominal pain [Recovered/Resolved]
